FAERS Safety Report 5653329-3 (Version None)
Quarter: 2008Q1

REPORT INFORMATION
  Report Type: 
  Country: None (occurrence: None)
  Receive Date: 20080131
  Receipt Date: 20071106
  Transmission Date: 20080703
  Serious: No
  Sender: FDA-Public Use
  Company Number: US200710005671

PATIENT
  Age: 64 Year
  Sex: Male
  Weight: 96.1 kg

DRUGS (11)
  1. BYETTA [Suspect]
     Indication: TYPE 2 DIABETES MELLITUS
     Dosage: 5 UG, 2/D, SUBCUTANEOUS; 10 UG, 2/D, SUBCUTANEOUS
     Route: 058
     Dates: start: 20070524, end: 20070620
  2. BYETTA [Suspect]
     Indication: TYPE 2 DIABETES MELLITUS
     Dosage: 5 UG, 2/D, SUBCUTANEOUS; 10 UG, 2/D, SUBCUTANEOUS
     Route: 058
     Dates: start: 20070621
  3. METFORMIN HCL [Concomitant]
  4. GLIMEPIRIDE [Concomitant]
  5. OMACOR [Concomitant]
  6. SAW PALMETTO (SERENOA REPENS) [Concomitant]
  7. VYTORIN [Concomitant]
  8. ARTHROTEC [Concomitant]
  9. ALLOPURINOL [Concomitant]
  10. ATACAND [Concomitant]
  11. ASPIRIN [Concomitant]

REACTIONS (12)
  - ABNORMAL FAECES [None]
  - BOWEL MOVEMENT IRREGULARITY [None]
  - BREATH ODOUR [None]
  - DECREASED APPETITE [None]
  - DRUG INEFFECTIVE [None]
  - DYSGEUSIA [None]
  - EARLY SATIETY [None]
  - HEPATIC ENZYME INCREASED [None]
  - NAUSEA [None]
  - OSTEOARTHRITIS [None]
  - URINE ODOUR ABNORMAL [None]
  - WEIGHT DECREASED [None]
